FAERS Safety Report 10448203 (Version 2)
Quarter: 2015Q2

REPORT INFORMATION
  Report Type: Spontaneous
  Country: GB (occurrence: GB)
  Receive Date: 20140911
  Receipt Date: 20150515
  Transmission Date: 20150821
  Serious: Yes (Other)
  Sender: FDA-Public Use
  Company Number: GB-GLAXOSMITHKLINE-B1032342A

PATIENT
  Age: 62 Year
  Sex: Female

DRUGS (2)
  1. GLUCOSAMINE SULPHATE [Concomitant]
     Active Substance: GLUCOSAMINE
  2. CLENIL MODULITE [Suspect]
     Active Substance: BECLOMETHASONE DIPROPIONATE
     Indication: ASTHMA LATE ONSET
     Dosage: 400 UNK, BID
     Route: 055
     Dates: start: 20140702, end: 201407

REACTIONS (3)
  - Oesophageal candidiasis [Not Recovered/Not Resolved]
  - Muscle spasms [Recovering/Resolving]
  - Dysphonia [Not Recovered/Not Resolved]

NARRATIVE: CASE EVENT DATE: 20140715
